FAERS Safety Report 23596165 (Version 1)
Quarter: 2024Q1

REPORT INFORMATION
  Report Type: Spontaneous
  Country: KW (occurrence: KW)
  Receive Date: 20240305
  Receipt Date: 20240305
  Transmission Date: 20240409
  Serious: Yes (Life-Threatening, Hospitalization, Other)
  Sender: FDA-Public Use
  Company Number: KW-PFIZER INC-202400056091

PATIENT

DRUGS (2)
  1. METHOTREXATE SODIUM [Suspect]
     Active Substance: METHOTREXATE SODIUM
     Indication: Pregnancy
     Dosage: UNK
     Route: 064
     Dates: start: 201709, end: 20171005
  2. LEUCOVORIN CALCIUM [Suspect]
     Active Substance: LEUCOVORIN CALCIUM
     Indication: Pregnancy
     Dosage: UNK
     Route: 064

REACTIONS (3)
  - Maternal exposure before pregnancy [Unknown]
  - Premature baby [Unknown]
  - Neonatal respiratory distress [Recovering/Resolving]
